FAERS Safety Report 7364773-0 (Version None)
Quarter: 2011Q1

REPORT INFORMATION
  Report Type: 
  Country: None (occurrence: None)
  Receive Date: 20110321
  Receipt Date: 20110317
  Transmission Date: 20110831
  Serious: Yes (Other)
  Sender: FDA-Public Use
  Company Number: US-ABBOTT-11P-163-0712756-00

PATIENT
  Sex: Male
  Weight: 99.88 kg

DRUGS (2)
  1. HUMIRA [Suspect]
     Indication: PSORIASIS
     Route: 058
     Dates: start: 20100101, end: 20101001
  2. HUMIRA [Suspect]
     Route: 058
     Dates: start: 20110304

REACTIONS (3)
  - PAIN IN EXTREMITY [None]
  - TENDON RUPTURE [None]
  - ILL-DEFINED DISORDER [None]
